FAERS Safety Report 5868716-8 (Version None)
Quarter: 2008Q3

REPORT INFORMATION
  Report Type: 
  Country: None (occurrence: None)
  Receive Date: 20080903
  Receipt Date: 20080714
  Transmission Date: 20090109
  Serious: Yes (Other)
  Sender: FDA-Public Use
  Company Number: US-PURDUE-USA_2008_0034524

PATIENT
  Age: 51 Year
  Sex: Male
  Weight: 125 kg

DRUGS (6)
  1. OXYCONTIN [Suspect]
     Indication: PAIN
     Dosage: 40 MG, TID
     Dates: start: 19981201, end: 20010329
  2. ZANAFLEX [Concomitant]
     Dosage: 4 MG, UNK
  3. ALPRAZOLAM [Concomitant]
     Dosage: 2 MG, UNK
  4. NADOLOL [Concomitant]
     Dosage: 80 MG, UNK
  5. CIPRO [Concomitant]
     Dosage: 500 MG, UNK
  6. LEVOTHYROXINE SODIUM [Concomitant]
     Dosage: .05 MG, UNK

REACTIONS (3)
  - BLINDNESS [None]
  - DRUG WITHDRAWAL SYNDROME [None]
  - PSYCHOTIC DISORDER [None]
